FAERS Safety Report 15306259 (Version 5)
Quarter: 2019Q3

REPORT INFORMATION
  Report Type: Spontaneous
  Country: US (occurrence: US)
  Receive Date: 20180822
  Receipt Date: 20190801
  Transmission Date: 20191004
  Serious: Yes (Other)
  Sender: FDA-Public Use
  Company Number: US-PFIZER INC-2018336463

PATIENT
  Age: 44 Year
  Sex: Female
  Weight: 95 kg

DRUGS (2)
  1. IBRANCE [Suspect]
     Active Substance: PALBOCICLIB
     Indication: BREAST CANCER METASTATIC
     Dosage: 125 MG, CYCLIC (D 1-21 Q 28 DAYS)
     Route: 048
     Dates: start: 20180726, end: 20190516
  2. TYKERB [Concomitant]
     Active Substance: LAPATINIB DITOSYLATE
     Dosage: UNK
     Dates: start: 20181001

REACTIONS (4)
  - Dizziness [Unknown]
  - Infection [Unknown]
  - Neoplasm progression [Unknown]
  - White blood cell count decreased [Unknown]

NARRATIVE: CASE EVENT DATE: 2018
